FAERS Safety Report 20009945 (Version 1)
Quarter: 2021Q4

REPORT INFORMATION
  Report Type: Spontaneous
  Country: CA (occurrence: CA)
  Receive Date: 20211028
  Receipt Date: 20211028
  Transmission Date: 20220303
  Serious: Yes (Other)
  Sender: FDA-Public Use
  Company Number: CA-PFIZER INC-202101447518

PATIENT
  Age: 77 Year
  Sex: Female
  Weight: 65.76 kg

DRUGS (5)
  1. DILANTIN [Suspect]
     Active Substance: PHENYTOIN
     Indication: Seizure
     Dosage: 500 MG, DAILY (200 MG MORNING + 300 MG AT NIGHT)
  2. BIOTIN [Concomitant]
     Active Substance: BIOTIN
     Dosage: UNK
  3. VITAMIN B COMPLEX [Concomitant]
     Active Substance: CYANOCOBALAMIN\DEXPANTHENOL\NIACINAMIDE\PYRIDOXINE HYDROCHLORIDE\RIBOFLAVIN 5^-PHOSPHATE SODIUM\THIA
     Dosage: UNK
  4. CHOLECALCIFEROL [Concomitant]
     Active Substance: CHOLECALCIFEROL
     Dosage: UNK
  5. VITAMIN C [Concomitant]
     Active Substance: ASCORBIC ACID
     Dosage: UNK

REACTIONS (3)
  - Loss of consciousness [Recovering/Resolving]
  - Malaise [Unknown]
  - Drug level fluctuating [Unknown]

NARRATIVE: CASE EVENT DATE: 20211014
